FAERS Safety Report 9303218 (Version 1)
Quarter: 2013Q2

REPORT INFORMATION
  Report Type: Spontaneous
  Country: US (occurrence: US)
  Receive Date: 20130522
  Receipt Date: 20130522
  Transmission Date: 20140414
  Serious: No
  Sender: FDA-Public Use
  Company Number: US-PFIZER INC-2013156771

PATIENT
  Age: 47 Year
  Sex: Female

DRUGS (7)
  1. XELJANZ [Suspect]
     Dosage: 5 MG, 2X/DAY
     Route: 048
     Dates: start: 201302
  2. LEVOTHYROXINE [Concomitant]
     Dosage: 150 UG, UNK
  3. COZAAR [Concomitant]
     Dosage: 100 MG, UNK
  4. METHOTREXATE [Concomitant]
     Dosage: 2.5 MG, UNK
  5. IBUPROFEN [Concomitant]
     Dosage: 800 MG, UNK
  6. ARMOUR THYROID [Concomitant]
     Dosage: 120 MG, UNK
  7. CELEXA [Concomitant]
     Dosage: 40 MG, UNK

REACTIONS (2)
  - Malaise [Unknown]
  - Nasopharyngitis [Unknown]
